FAERS Safety Report 7649163-5 (Version None)
Quarter: 2011Q3

REPORT INFORMATION
  Report Type: 
  Country: None (occurrence: None)
  Receive Date: 20110721
  Receipt Date: 20110711
  Transmission Date: 20111222
  Serious: Yes (Hospitalization)
  Sender: FDA-Public Use
  Company Number: AEUSA201100153

PATIENT
  Age: 1 Day
  Sex: Male
  Weight: 2.5855 kg

DRUGS (1)
  1. HYPERRHO [Suspect]
     Indication: PROPHYLAXIS AGAINST RH ISOIMMUNISATION
     Dosage: 1500 IU;1X;IM
     Route: 030
     Dates: start: 20110328, end: 20110328

REACTIONS (2)
  - MATERNAL DRUGS AFFECTING FOETUS [None]
  - RHESUS HAEMOLYTIC DISEASE OF NEWBORN [None]
